FAERS Safety Report 6999552-7 (Version None)
Quarter: 2010Q3

REPORT INFORMATION
  Report Type: 
  Country: None (occurrence: None)
  Receive Date: 20100920
  Receipt Date: 20070919
  Transmission Date: 20110219
  Serious: Yes (Other)
  Sender: FDA-Public Use
  Company Number: US-ASTRAZENECA-2007UW19154

PATIENT
  Age: 51 Year
  Sex: Female
  Weight: 53.5 kg

DRUGS (22)
  1. SEROQUEL [Suspect]
     Indication: ANXIETY
     Dosage: 200 TO 400 MG
     Route: 048
     Dates: start: 20010101
  2. SEROQUEL [Suspect]
     Indication: DEPRESSION
     Dosage: 200 TO 400 MG
     Route: 048
     Dates: start: 20010101
  3. SEROQUEL [Suspect]
     Indication: SCHIZOPHRENIA
     Dosage: 200 TO 400 MG
     Route: 048
     Dates: start: 20010101
  4. SEROQUEL [Suspect]
     Indication: THINKING ABNORMAL
     Dosage: 200 TO 400 MG
     Route: 048
     Dates: start: 20010101
  5. SEROQUEL [Suspect]
     Dosage: 25 MG - 400 MG
     Route: 048
     Dates: start: 20020419
  6. SEROQUEL [Suspect]
     Dosage: 25 MG - 400 MG
     Route: 048
     Dates: start: 20020419
  7. SEROQUEL [Suspect]
     Dosage: 25 MG - 400 MG
     Route: 048
     Dates: start: 20020419
  8. SEROQUEL [Suspect]
     Dosage: 25 MG - 400 MG
     Route: 048
     Dates: start: 20020419
  9. ZYPREXA [Concomitant]
     Dates: start: 20000101, end: 20020101
  10. ZOLOFT [Concomitant]
     Route: 048
     Dates: start: 20040821, end: 20070916
  11. DESYREL [Concomitant]
     Route: 048
  12. DISTRIL [Concomitant]
  13. TRAZODONE HCL [Concomitant]
     Dosage: 100 MG - 150 MG
     Dates: start: 20020215, end: 20070905
  14. WELLBUTRIN [Concomitant]
     Dates: start: 20040423
  15. PLAVIX [Concomitant]
     Indication: TRANSIENT ISCHAEMIC ATTACK
     Route: 048
  16. LIPITOR [Concomitant]
     Route: 048
  17. MORPHINE SULFATE [Concomitant]
     Indication: PAIN
     Dosage: 3-5 MG
  18. ADVAIR DISKUS 100/50 [Concomitant]
     Dosage: 250/50 DOSE ONE PUFF TWICE A DAY
     Dates: start: 20020905
  19. FLEXERIL [Concomitant]
  20. ALBUTEROL [Concomitant]
     Dosage: 2 PUFFS FOUR TIMES A DAY
  21. GLUCOTROL [Concomitant]
  22. PRAVACHOL [Concomitant]
     Route: 048

REACTIONS (3)
  - DIABETES MELLITUS [None]
  - SUICIDAL BEHAVIOUR [None]
  - TYPE 2 DIABETES MELLITUS [None]
